FAERS Safety Report 19435911 (Version 2)
Quarter: 2021Q3

REPORT INFORMATION
  Report Type: Spontaneous
  Country: JP (occurrence: JP)
  Receive Date: 20210618
  Receipt Date: 20210803
  Transmission Date: 20211014
  Serious: No
  Sender: FDA-Public Use
  Company Number: JP-CELGENEUS-JPN-20210604124

PATIENT
  Age: 85 Year
  Sex: Male

DRUGS (2)
  1. REVLIMID [Suspect]
     Active Substance: LENALIDOMIDE
     Indication: PLASMA CELL MYELOMA
     Dosage: UNKNOWN
     Route: 048
  2. REVLIMID [Suspect]
     Active Substance: LENALIDOMIDE
     Dosage: UNKNOWN
     Route: 048

REACTIONS (1)
  - Oedema [Recovered/Resolved]

NARRATIVE: CASE EVENT DATE: 20210615
